FAERS Safety Report 6240624-2 (Version None)
Quarter: 2009Q2

REPORT INFORMATION
  Report Type: 
  Country: None (occurrence: None)
  Receive Date: 20090623
  Receipt Date: 20081119
  Transmission Date: 20091009
  Serious: No
  Sender: FDA-Public Use
  Company Number: US-ASTRAZENECA-2008UW25134

PATIENT
  Age: 67 Year
  Sex: Female
  Weight: 90.7 kg

DRUGS (11)
  1. PULMICORT FLEXHALER [Suspect]
     Indication: CHRONIC OBSTRUCTIVE PULMONARY DISEASE
     Dosage: 180 MCG
     Route: 055
     Dates: start: 20070601
  2. SEREVENT [Concomitant]
  3. SINGULAIR [Concomitant]
  4. VYTORIN [Concomitant]
  5. VITAMIN D [Concomitant]
  6. ESTROGEN [Concomitant]
  7. SYNTHROID [Concomitant]
  8. VERAPAMIL [Concomitant]
  9. CHLORTHADONE [Concomitant]
  10. COZAAR [Concomitant]
  11. ALBUTEROL [Concomitant]

REACTIONS (3)
  - DRUG INEFFECTIVE [None]
  - DYSPNOEA [None]
  - PALPITATIONS [None]
